FAERS Safety Report 10526826 (Version 1)
Quarter: 2014Q4

REPORT INFORMATION
  Report Type: Spontaneous
  Country: CA (occurrence: CA)
  Receive Date: 20141020
  Receipt Date: 20141020
  Transmission Date: 20150528
  Serious: Yes (Other)
  Sender: FDA-Public Use
  Company Number: CA-009507513-1410CAN007729

PATIENT
  Age: 83 Year
  Sex: Male

DRUGS (2)
  1. SODIUM CHLORIDE. [Concomitant]
     Active Substance: SODIUM CHLORIDE
  2. CANCIDAS [Suspect]
     Active Substance: CASPOFUNGIN ACETATE
     Dosage: 70 MG, UNK
     Route: 042

REACTIONS (7)
  - Heart rate increased [Unknown]
  - Abnormal behaviour [Unknown]
  - Mobility decreased [Unknown]
  - Hypertension [Unknown]
  - Body temperature increased [Unknown]
  - Tremor [Unknown]
  - Dyspnoea [Unknown]
